FAERS Safety Report 7530382-3 (Version None)
Quarter: 2011Q2

REPORT INFORMATION
  Report Type: 
  Country: None (occurrence: None)
  Receive Date: 20110607
  Receipt Date: 20110526
  Transmission Date: 20111010
  Serious: Yes (Other)
  Sender: FDA-Public Use
  Company Number: US-ELI_LILLY_AND_COMPANY-US201106000078

PATIENT
  Sex: Female

DRUGS (5)
  1. AMITRIPTYLINE HCL [Concomitant]
  2. TOPAMAX [Concomitant]
  3. PROZAC [Suspect]
     Dosage: 40 MG, QD
     Dates: start: 19900201, end: 20080101
  4. PROZAC [Suspect]
     Indication: DEPRESSION
     Dosage: 20 MG, QD
     Dates: start: 19900201, end: 20080101
  5. PROZAC [Suspect]
     Dosage: 60 MG, QD
     Dates: start: 19900201, end: 20080101

REACTIONS (10)
  - CARDIAC FAILURE [None]
  - NEUROSIS [None]
  - COLITIS [None]
  - SEXUAL DYSFUNCTION [None]
  - FAECAL INCONTINENCE [None]
  - RENAL FAILURE [None]
  - OSTEOPENIA [None]
  - TOXICITY TO VARIOUS AGENTS [None]
  - PSYCHOTIC DISORDER [None]
  - PERSONALITY DISORDER [None]
